FAERS Safety Report 14538141 (Version 1)
Quarter: 2018Q1

REPORT INFORMATION
  Report Type: Report from Study
  Country: None (occurrence: US)
  Receive Date: 20180216
  Receipt Date: 20180216
  Transmission Date: 20180509
  Serious: Yes (Other)
  Sender: FDA-Public Use
  Company Number: US-ABBVIE-18K-163-2252979-00

PATIENT
  Age: 51 Year
  Sex: Female

DRUGS (2)
  1. HUMIRA [Suspect]
     Active Substance: ADALIMUMAB
     Indication: PSORIATIC ARTHROPATHY
     Route: 058
     Dates: start: 201712
  2. HUMIRA [Suspect]
     Active Substance: ADALIMUMAB
     Indication: PSORIASIS
     Route: 058
     Dates: end: 2016

REACTIONS (13)
  - Arthritis [Unknown]
  - Injection site pain [Recovered/Resolved]
  - Nerve injury [Not Recovered/Not Resolved]
  - Psoriasis [Recovering/Resolving]
  - Road traffic accident [Recovered/Resolved with Sequelae]
  - Injection site mass [Recovered/Resolved]
  - Wrong technique in product usage process [Recovered/Resolved]
  - Device issue [Recovered/Resolved]
  - Drug effect delayed [Not Recovered/Not Resolved]
  - Intervertebral disc protrusion [Recovered/Resolved with Sequelae]
  - Stress [Unknown]
  - Musculoskeletal stiffness [Not Recovered/Not Resolved]
  - Psoriasis [Not Recovered/Not Resolved]

NARRATIVE: CASE EVENT DATE: 2016
